FAERS Safety Report 10260596 (Version 4)
Quarter: 2014Q3

REPORT INFORMATION
  Report Type: Spontaneous
  Country: IT (occurrence: IT)
  Receive Date: 20140626
  Receipt Date: 20140903
  Transmission Date: 20150326
  Serious: Yes (Hospitalization)
  Sender: FDA-Public Use
  Company Number: IT-ROCHE-1424460

PATIENT
  Age: 23 Year
  Sex: Female

DRUGS (1)
  1. DIAZEPAM. [Suspect]
     Active Substance: DIAZEPAM
     Indication: PRODUCT USED FOR UNKNOWN INDICATION
     Route: 048
     Dates: start: 20140622, end: 20140622

REACTIONS (3)
  - Somnolence [Recovering/Resolving]
  - Drug abuse [Unknown]
  - Dysphoria [Recovering/Resolving]

NARRATIVE: CASE EVENT DATE: 20140622
